FAERS Safety Report 9207547 (Version 1)
Quarter: 2013Q2

REPORT INFORMATION
  Report Type: Spontaneous
  Country: CA (occurrence: CA)
  Receive Date: 20130403
  Receipt Date: 20130403
  Transmission Date: 20140414
  Serious: Yes (Other)
  Sender: FDA-Public Use
  Company Number: CA-ROCHE-1208791

PATIENT
  Age: 54 Year
  Sex: Female
  Weight: 77 kg

DRUGS (4)
  1. XOLAIR [Suspect]
     Indication: ASTHMA
     Route: 058
     Dates: start: 20080911
  2. XOLAIR [Suspect]
     Route: 058
     Dates: start: 20090409
  3. XOLAIR [Suspect]
     Route: 058
     Dates: start: 20091207
  4. XOLAIR [Suspect]
     Route: 058
     Dates: start: 20091221

REACTIONS (16)
  - Lower respiratory tract infection [Unknown]
  - Respiratory tract congestion [Unknown]
  - Sinusitis [Not Recovered/Not Resolved]
  - Polyp [Unknown]
  - Mastitis [Unknown]
  - Malaise [Unknown]
  - Epistaxis [Unknown]
  - Influenza [Unknown]
  - Wheezing [Unknown]
  - Skin infection [Unknown]
  - Confusional state [Unknown]
  - Feeling cold [Unknown]
  - Oropharyngeal pain [Unknown]
  - Cough [Unknown]
  - Rash [Unknown]
  - Pruritus [Unknown]
